FAERS Safety Report 6648952-3 (Version None)
Quarter: 2010Q1

REPORT INFORMATION
  Report Type: 
  Country: None (occurrence: None)
  Receive Date: 20100319
  Receipt Date: 20100311
  Transmission Date: 20100710
  Serious: Yes (Other)
  Sender: FDA-Public Use
  Company Number: SPV1-2010-00467

PATIENT
  Sex: Male

DRUGS (2)
  1. MESALAMINE [Suspect]
     Indication: DRUG USE FOR UNKNOWN INDICATION
     Dosage: 2.4 G, 4.8 G
  2. CORTICOSTEROID NOS (CORTICOSTEROID NOS) UNKNOWN [Suspect]
     Indication: DRUG USE FOR UNKNOWN INDICATION

REACTIONS (2)
  - PANCREATITIS [None]
  - STEVENS-JOHNSON SYNDROME [None]
